FAERS Safety Report 14482485 (Version 1)
Quarter: 2018Q1

REPORT INFORMATION
  Report Type: Spontaneous
  Country: LT (occurrence: LT)
  Receive Date: 20180202
  Receipt Date: 20180202
  Transmission Date: 20180509
  Serious: Yes (Hospitalization, Other)
  Sender: FDA-Public Use
  Company Number: LT-009507513-1801LTU014486

PATIENT
  Age: 53 Year
  Sex: Female

DRUGS (17)
  1. TRAMADOL HYDROCHLORIDE. [Interacting]
     Active Substance: TRAMADOL HYDROCHLORIDE
     Indication: PAIN MANAGEMENT
     Route: 048
  2. TIANEPTINE [Concomitant]
     Active Substance: TIANEPTINE
     Indication: PAIN MANAGEMENT
  3. PEMETREXED DISODIUM [Concomitant]
     Active Substance: PEMETREXED DISODIUM
     Indication: PLEURAL MESOTHELIOMA
     Dosage: UNK
     Dates: start: 2016
  4. BETALOC ZOK [Concomitant]
     Active Substance: METOPROLOL SUCCINATE
     Indication: HYPERTENSION
     Dosage: 47.5 MG, QD
     Route: 048
  5. CISPLATIN. [Interacting]
     Active Substance: CISPLATIN
     Indication: PLEURAL MESOTHELIOMA
     Dosage: 0.5MG/ML 100ML
     Route: 042
     Dates: start: 201611
  6. FENTANYL. [Interacting]
     Active Substance: FENTANYL
     Indication: PROPHYLAXIS
  7. TIANEPTINE [Concomitant]
     Active Substance: TIANEPTINE
     Indication: DEPRESSION
     Route: 048
  8. MANNITOL. [Concomitant]
     Active Substance: MANNITOL
     Indication: DRUG TOXICITY PROPHYLAXIS
     Dosage: 1000 ML, 10 PERCENTAGE
     Dates: start: 2016
  9. ALPRAZOLAM. [Interacting]
     Active Substance: ALPRAZOLAM
     Indication: ANXIETY DISORDER
     Route: 048
  10. FENTANYL. [Interacting]
     Active Substance: FENTANYL
     Indication: PAIN MANAGEMENT
     Dosage: ROUTE OF ADMINISTRATION-LOCAL PATCH, 75 MG/HOUR DAILY.
  11. ONDANSETRON [Interacting]
     Active Substance: ONDANSETRON
     Indication: PROPHYLAXIS OF NAUSEA AND VOMITING
     Dosage: 8 MG, UNK
     Route: 048
     Dates: start: 2016
  12. APREPITANT. [Suspect]
     Active Substance: APREPITANT
     Indication: PROPHYLAXIS OF NAUSEA AND VOMITING
     Dosage: UNK
     Route: 048
     Dates: start: 2016
  13. PEMETREXED DISODIUM [Concomitant]
     Active Substance: PEMETREXED DISODIUM
     Dosage: UNK
     Dates: start: 2015
  14. DEXAMETHASONE. [Interacting]
     Active Substance: DEXAMETHASONE
     Indication: DRUG TOLERANCE INCREASED
     Dosage: 8 DF, UNK
     Route: 048
     Dates: start: 2016
  15. CYANOCOBALAMIN. [Concomitant]
     Active Substance: CYANOCOBALAMIN
     Indication: PRODUCT USED FOR UNKNOWN INDICATION
     Dosage: 1000 MG, UNK
  16. FOLIC ACID. [Concomitant]
     Active Substance: FOLIC ACID
     Indication: PRODUCT USED FOR UNKNOWN INDICATION
     Route: 042
  17. CISPLATIN. [Interacting]
     Active Substance: CISPLATIN
     Dosage: UNK
     Route: 042
     Dates: start: 2015

REACTIONS (3)
  - Drug interaction [Unknown]
  - Circulatory collapse [Recovered/Resolved]
  - Cardiac arrest [Recovered/Resolved]

NARRATIVE: CASE EVENT DATE: 2016
